FAERS Safety Report 9230445 (Version 1)
Quarter: 2013Q1

REPORT INFORMATION
  Report Type: Spontaneous
  Country: US (occurrence: None)
  Receive Date: 20121019
  Receipt Date: 20121019
  Transmission Date: 20140127
  Serious: Yes (Other)
  Sender: FDA-Public Use
  Company Number: 2012P1003942

PATIENT
  Sex: Male

DRUGS (1)
  1. FENTANYL PATCH [Suspect]

REACTIONS (2)
  - Hallucination [None]
  - Unevaluable event [None]
